FAERS Safety Report 6301693-4 (Version None)
Quarter: 2009Q3

REPORT INFORMATION
  Report Type: 
  Country: None (occurrence: None)
  Receive Date: 20090807
  Receipt Date: 20090804
  Transmission Date: 20100115
  Serious: Yes (Life-Threatening, Other)
  Sender: FDA-Public Use
  Company Number: PHHY2009FR32539

PATIENT
  Age: 38 Year
  Sex: Female

DRUGS (6)
  1. NEORAL [Suspect]
     Indication: LIVER TRANSPLANT
     Dosage: UNK
     Dates: start: 20050101, end: 20070101
  2. PROGRAF [Suspect]
     Indication: LIVER TRANSPLANT
     Dosage: UNK
     Dates: start: 20050101
  3. CELLCEPT [Concomitant]
     Indication: LIVER TRANSPLANT
  4. RADIO-THERAPY [Concomitant]
     Dosage: UNK
     Dates: start: 20051101
  5. TACROLIMUS [Concomitant]
  6. RAPAMUNE [Concomitant]

REACTIONS (6)
  - AGRANULOCYTOSIS [None]
  - METASTASES TO LUNG [None]
  - METASTASIS [None]
  - SKIN NODULE [None]
  - SYNOVIAL SARCOMA RECURRENT [None]
  - TUMOUR EXCISION [None]
